FAERS Safety Report 7359459-2 (Version None)
Quarter: 2011Q1

REPORT INFORMATION
  Report Type: 
  Country: None (occurrence: None)
  Receive Date: 20110317
  Receipt Date: 20091204
  Transmission Date: 20110831
  Serious: No
  Sender: FDA-Public Use
  Company Number: US-PFIZER INC-2009289461

PATIENT
  Sex: Female
  Weight: 59 kg

DRUGS (13)
  1. AMLODIPINE BESYLATE [Suspect]
     Indication: HYPERTENSION
     Dosage: 5 MG, 1X/DAY
     Route: 048
     Dates: start: 20090504
  2. ACETYLSALICYLIC ACID [Concomitant]
     Indication: CARDIAC DISORDER
     Dosage: 81 MG, 1X/DAY
     Route: 048
  3. CENTRUM SILVER [Concomitant]
     Dosage: UNK MG, 1X/DAY
     Route: 048
  4. BIOTIN [Concomitant]
     Dosage: UNK MG, 2X/DAY
     Route: 048
  5. ALLOPURINOL [Suspect]
     Indication: HYPERURICAEMIA
     Dosage: 100 MG, 2X/DAY
     Route: 048
     Dates: start: 20090309
  6. ZETIA [Concomitant]
     Indication: BLOOD CHOLESTEROL INCREASED
     Dosage: 10 MG, 1X/DAY
     Route: 048
  7. BENICAR [Concomitant]
     Indication: HYPERTENSION
     Dosage: 40 MG, 1X/DAY
     Route: 048
  8. FISH OIL [Concomitant]
     Dosage: UNK MG, 3X/DAY
     Route: 048
  9. ADVAIR DISKUS 100/50 [Concomitant]
     Dosage: UNK UG, 2X/DAY
     Route: 055
  10. ALENDRONATE SODIUM [Concomitant]
     Indication: OSTEOPOROSIS
     Dosage: 70 MG, WEEKLY
     Route: 048
  11. CRANBERRY [Concomitant]
     Indication: URINARY TRACT DISORDER
     Dosage: 1000 MG, 3X/DAY
     Route: 048
  12. SYNTHROID [Concomitant]
     Indication: THYROID DISORDER
     Dosage: 75 MG, 1X/DAY
     Route: 048
  13. PREMARIN [Concomitant]
     Indication: NOCTURIA
     Dosage: UNK

REACTIONS (2)
  - DRY SKIN [None]
  - RASH ERYTHEMATOUS [None]
